FAERS Safety Report 22614641 (Version 3)
Quarter: 2023Q4

REPORT INFORMATION
  Report Type: Report from Study
  Country: US (occurrence: US)
  Receive Date: 20230619
  Receipt Date: 20231026
  Transmission Date: 20240110
  Serious: No
  Sender: FDA-Public Use
  Company Number: US-IDORSIA-005654-2023-US

PATIENT
  Sex: Female
  Weight: 72.562 kg

DRUGS (1)
  1. QUVIVIQ [Suspect]
     Active Substance: DARIDOREXANT
     Indication: Insomnia
     Dosage: 50 MG, QD
     Route: 048
     Dates: start: 20230430, end: 20230430

REACTIONS (4)
  - Rash [Unknown]
  - Photopsia [Unknown]
  - Anxiety [Unknown]
  - Drug ineffective [Unknown]
